FAERS Safety Report 19266147 (Version 6)
Quarter: 2021Q4

REPORT INFORMATION
  Report Type: Spontaneous
  Country: JP (occurrence: JP)
  Receive Date: 20210518
  Receipt Date: 20211109
  Transmission Date: 20220303
  Serious: Yes (Hospitalization, Other)
  Sender: FDA-Public Use
  Company Number: JP-KYOWAKIRIN-2021AKK007950

PATIENT
  Age: 74 Year
  Sex: Male

DRUGS (7)
  1. DARBEPOETIN ALFA [Suspect]
     Active Substance: DARBEPOETIN ALFA
     Indication: Nephrogenic anaemia
     Dosage: 180 MICROGRAM, QWK
     Route: 065
     Dates: end: 20200927
  2. DAPRODUSTAT [Concomitant]
     Active Substance: DAPRODUSTAT
     Indication: Nephrogenic anaemia
     Dosage: 4 MILLIGRAM
     Route: 048
     Dates: start: 20200928, end: 20201025
  3. DAPRODUSTAT [Concomitant]
     Active Substance: DAPRODUSTAT
     Dosage: 6 MILLIGRAM
     Route: 048
     Dates: start: 20201026, end: 20201123
  4. DAPRODUSTAT [Concomitant]
     Active Substance: DAPRODUSTAT
     Dosage: 8 MILLIGRAM
     Route: 048
     Dates: start: 20201124, end: 20201222
  5. DAPRODUSTAT [Concomitant]
     Active Substance: DAPRODUSTAT
     Dosage: 12 MILLIGRAM
     Route: 048
     Dates: start: 20201223, end: 20210120
  6. DAPRODUSTAT [Concomitant]
     Active Substance: DAPRODUSTAT
     Dosage: 18 MILLIGRAM
     Route: 048
     Dates: start: 20210121, end: 20210218
  7. DAPRODUSTAT [Concomitant]
     Active Substance: DAPRODUSTAT
     Dosage: 24 MILLIGRAM
     Route: 048
     Dates: start: 20210219

REACTIONS (3)
  - Meningitis [Unknown]
  - Pneumothorax [Unknown]
  - Pneumothorax [Recovered/Resolved]

NARRATIVE: CASE EVENT DATE: 20210401
